FAERS Safety Report 12331371 (Version 1)
Quarter: 2016Q2

REPORT INFORMATION
  Report Type: Spontaneous
  Country: US (occurrence: US)
  Receive Date: 20160504
  Receipt Date: 20160504
  Transmission Date: 20160815
  Serious: Yes (Hospitalization, Other)
  Sender: FDA-Public Use
  Company Number: ALCN2016US003039

PATIENT
  Age: 2 Year
  Sex: Male

DRUGS (1)
  1. POLY B SULFATE/TRIMETHOPRIM [Suspect]
     Active Substance: POLYMYXIN B SULFATE\TRIMETHOPRIM
     Indication: CONJUNCTIVITIS BACTERIAL
     Dosage: UNK GTT, UNK
     Route: 047

REACTIONS (5)
  - Anaphylactic reaction [Recovered/Resolved]
  - Eye swelling [Recovered/Resolved]
  - Stridor [Recovered/Resolved]
  - Lip swelling [Recovered/Resolved]
  - Erythema [Recovered/Resolved]
